FAERS Safety Report 6619901-9 (Version None)
Quarter: 2010Q1

REPORT INFORMATION
  Report Type: 
  Country: None (occurrence: None)
  Receive Date: 20100304
  Receipt Date: 20100222
  Transmission Date: 20100710
  Serious: Yes (Hospitalization)
  Sender: FDA-Public Use
  Company Number: 2010AM001026

PATIENT
  Age: 57 Year
  Sex: Female

DRUGS (6)
  1. SYMLIN [Suspect]
     Indication: WEIGHT CONTROL
     Dosage: 120 MCG; TID; SC
     Route: 058
     Dates: start: 20080801
  2. ENALAPRIL MALEATE [Concomitant]
  3. LIPITOR [Concomitant]
  4. CALCIUM [Concomitant]
  5. ASPIRIN [Concomitant]
  6. GARLIC [Concomitant]

REACTIONS (2)
  - SPINAL FRACTURE [None]
  - WEIGHT INCREASED [None]
